FAERS Safety Report 21292394 (Version 1)
Quarter: 2022Q3

REPORT INFORMATION
  Report Type: Spontaneous
  Country: PL (occurrence: PL)
  Receive Date: 20220905
  Receipt Date: 20220905
  Transmission Date: 20221027
  Serious: Yes (Other)
  Sender: FDA-Public Use
  Company Number: PL-SUN PHARMACEUTICAL INDUSTRIES LTD-2022R1-353362

PATIENT
  Age: 9 Year
  Sex: Male

DRUGS (3)
  1. PREDNISONE [Suspect]
     Active Substance: PREDNISONE
     Indication: Rectal ulcer
     Dosage: UNK
     Route: 065
  2. SULFASALAZINE [Suspect]
     Active Substance: SULFASALAZINE
     Indication: Rectal ulcer
     Dosage: UNK
     Route: 065
  3. SUCRALFATE [Suspect]
     Active Substance: SUCRALFATE
     Indication: Rectal ulcer
     Dosage: UNK
     Route: 065

REACTIONS (1)
  - Disease progression [Unknown]
